FAERS Safety Report 4992694-7 (Version None)
Quarter: 2006Q1

REPORT INFORMATION
  Report Type: 
  Country: None (occurrence: None)
  Receive Date: 20060313
  Receipt Date: 20060126
  Transmission Date: 20060701
  Serious: No
  Sender: FDA-Public Use
  Company Number: 2006-BP-01027BP

PATIENT
  Age: 78 Year
  Sex: Male

DRUGS (5)
  1. SPIRIVA [Suspect]
     Indication: CHRONIC OBSTRUCTIVE PULMONARY DISEASE
     Dosage: 18 MCG (18 MCG, QD), IH
     Route: 055
     Dates: start: 20040601
  2. ADVAIR (SERETIDE) [Concomitant]
  3. ALBUTEROL SULFATE AUTOHALER [Concomitant]
  4. HYPERTENSION MEDICINE [Concomitant]
  5. DIABETES MEDICINE (ANTI-DIABETICS) [Concomitant]

REACTIONS (1)
  - DRUG INEFFECTIVE [None]
